FAERS Safety Report 17715077 (Version 1)
Quarter: 2020Q2

REPORT INFORMATION
  Report Type: Report from Study
  Country: US (occurrence: US)
  Receive Date: 20200427
  Receipt Date: 20200427
  Transmission Date: 20200714
  Serious: Yes (Hospitalization)
  Sender: FDA-Public Use
  Company Number: US-002147023-NVSC2019US038514

PATIENT
  Age: 61 Year
  Sex: Female
  Weight: 53.6 kg

DRUGS (7)
  1. TOBI PODHALER [Suspect]
     Active Substance: TOBRAMYCIN
     Indication: INFECTIVE PULMONARY EXACERBATION OF CYSTIC FIBROSIS
     Dosage: 112 MG, BID
     Route: 055
     Dates: start: 20190817, end: 20190820
  2. PULMOZYME [Concomitant]
     Active Substance: DORNASE ALFA
     Indication: LIVER DISORDER
     Dosage: 2.5 ML, QD
     Route: 065
     Dates: start: 20070412
  3. SYMBICORT [Concomitant]
     Active Substance: BUDESONIDE\FORMOTEROL FUMARATE DIHYDRATE
     Indication: LIVER DISORDER
     Dosage: 2 PUFFS, BID
     Route: 065
     Dates: start: 20100630
  4. PROAIR HFA [Concomitant]
     Active Substance: ALBUTEROL SULFATE
     Indication: LIVER DISORDER
     Dosage: 2 PUFFS NHX9H
     Route: 065
  5. ALBUTEROL. [Concomitant]
     Active Substance: ALBUTEROL
     Indication: LIVER DISORDER
     Dosage: 3 ML, Q6H
     Route: 065
     Dates: start: 20151015
  6. TEZACAFTOR [Concomitant]
     Active Substance: TEZACAFTOR
     Indication: CFTR GENE MUTATION
     Dosage: 2 DF, BID (AM AND HS)
     Route: 065
     Dates: start: 20180606
  7. ALENDRONATE [Concomitant]
     Active Substance: ALENDRONATE SODIUM
     Indication: BONE DENSITY DECREASED
     Dosage: 1 DF, QW (10 MG)
     Route: 048
     Dates: start: 20140609

REACTIONS (2)
  - Infective pulmonary exacerbation of cystic fibrosis [Recovered/Resolved]
  - Dyspnoea [Recovered/Resolved]

NARRATIVE: CASE EVENT DATE: 20190817
